FAERS Safety Report 17107305 (Version 2)
Quarter: 2019Q4

REPORT INFORMATION
  Report Type: Spontaneous
  Country: DE (occurrence: DE)
  Receive Date: 20191203
  Receipt Date: 20191209
  Transmission Date: 20200122
  Serious: Yes (Hospitalization)
  Sender: FDA-Public Use
  Company Number: DE-MYLANLABS-2019M1116271

PATIENT
  Age: 59 Year
  Sex: Male
  Weight: 81 kg

DRUGS (13)
  1. PROPOFOL. [Suspect]
     Active Substance: PROPOFOL
     Indication: PRODUCT USED FOR UNKNOWN INDICATION
     Dosage: NK NK, INTRAOPERATIVE NARKOSE, INJEKTIONS-/INFUSIONSL?SUNG
     Route: 042
  2. CEFUROXIM                          /00454602/ [Suspect]
     Active Substance: CEFUROXIME
     Indication: PRODUCT USED FOR UNKNOWN INDICATION
     Dosage: NK NK, EINMALGABE INTRAOPERATIV, INJEKTIONS-/INFUSIONSL?SUNG
     Route: 042
  3. DESFLURANE. [Suspect]
     Active Substance: DESFLURANE
     Dosage: NK NK, INTRAOPERATIVE NARKOSE, INHALATIONSAN?STHETIKUM
     Route: 055
  4. LEVOFLOXACIN. [Suspect]
     Active Substance: LEVOFLOXACIN
     Indication: PRODUCT USED FOR UNKNOWN INDICATION
     Dosage: NK NK, NK, ZULETZT AM 19.03.2018, TABLETTEN
     Route: 048
  5. COAPROVEL [Concomitant]
     Active Substance: HYDROCHLOROTHIAZIDE\IRBESARTAN
     Dosage: 150, 12.5 MG, 1-0-0-0, TABLETTEN
     Route: 048
  6. PANTOPRAZOL                        /01263201/ [Concomitant]
     Active Substance: PANTOPRAZOLE
     Dosage: 40 MG, 1-0-0-0, TABLETTEN
     Route: 048
  7. METAMIZOL                          /06276701/ [Concomitant]
     Active Substance: METAMIZOLE
     Dosage: 500 MG, 1-1-1-1, BEI BEDARF, TABLETTEN
     Route: 048
  8. FENTANYL. [Suspect]
     Active Substance: FENTANYL
     Indication: PRODUCT USED FOR UNKNOWN INDICATION
     Dosage: NK NK, INTRAOPERATIVE NARKOSE, INJEKTIONS-/INFUSIONSL?SUNG
     Route: 042
  9. PIRITRAMIDE [Suspect]
     Active Substance: PIRITRAMIDE
     Indication: PRODUCT USED FOR UNKNOWN INDICATION
     Dosage: NK NK, INTRAOPERATIVE NARKOSE, INJEKTIONS-/INFUSIONSL?SUNG
     Route: 042
  10. AKRINOR [Suspect]
     Active Substance: CAFEDRINE HYDROCHLORIDE\THEODRENALINE
     Indication: PRODUCT USED FOR UNKNOWN INDICATION
     Dosage: NK NK, INTRAOPERATIVE NARKOSE, INJEKTIONS-/INFUSIONSL?SUNG
     Route: 042
  11. APROVEL [Concomitant]
     Active Substance: IRBESARTAN
     Dosage: 75 MG, 0-0-1-0, TABLETTEN
     Route: 048
  12. ENOXAPARIN [Concomitant]
     Active Substance: ENOXAPARIN
     Dosage: 0.4 ML, 1X T?GLICH FUR 4 WOCHEN, INJEKTIONS-/INFUSIONSL?SUNG
     Route: 058
  13. METOPROLOL. [Concomitant]
     Active Substance: METOPROLOL
     Dosage: 50 MG, 0.5-0-0-0, TABLETTEN
     Route: 048

REACTIONS (2)
  - Liver function test abnormal [Unknown]
  - Systemic infection [Unknown]
